FAERS Safety Report 9379287 (Version 1)
Quarter: 2013Q3

REPORT INFORMATION
  Report Type: Spontaneous
  Country: US (occurrence: US)
  Receive Date: 20130702
  Receipt Date: 20130702
  Transmission Date: 20140515
  Serious: No
  Sender: FDA-Public Use
  Company Number: US-BAYER-2013-080504

PATIENT
  Age: 35 Year
  Sex: Male
  Weight: 70 kg

DRUGS (1)
  1. ALEVE TABLET [Suspect]
     Indication: HEADACHE
     Dosage: 9 DF, ONCE
     Route: 048
     Dates: start: 20130623, end: 20130623

REACTIONS (1)
  - Extra dose administered [None]
